FAERS Safety Report 19068801 (Version 1)
Quarter: 2021Q1

REPORT INFORMATION
  Report Type: Spontaneous
  Country: US (occurrence: US)
  Receive Date: 20210329
  Receipt Date: 20210329
  Transmission Date: 20210420
  Serious: No
  Sender: FDA-Public Use
  Company Number: US-EMERGENT BIOSOLUTIONS,-21000022SP

PATIENT
  Sex: Female

DRUGS (3)
  1. NARCAN [Suspect]
     Active Substance: NALOXONE HYDROCHLORIDE
     Indication: OVERDOSE
     Route: 045
  2. HEROIN [Suspect]
     Active Substance: DIAMORPHINE
     Route: 055
  3. IBUPROFEN. [Concomitant]
     Active Substance: IBUPROFEN
     Dosage: ONE AND A HALF 800 MG
     Route: 065

REACTIONS (5)
  - Anxiety [Unknown]
  - Blood pressure fluctuation [Unknown]
  - Psychomotor hyperactivity [Unknown]
  - Lethargy [Unknown]
  - Somnolence [Unknown]
